FAERS Safety Report 24702925 (Version 1)
Quarter: 2024Q4

REPORT INFORMATION
  Report Type: Spontaneous
  Country: US (occurrence: US)
  Receive Date: 20241205
  Receipt Date: 20241205
  Transmission Date: 20250115
  Serious: No
  Sender: ASCENT PHARMACEUTICALS INC
  Company Number: US-ASCENT-2024ASSPO00055

PATIENT
  Age: 36 Year
  Sex: Female
  Weight: 200 kg

DRUGS (2)
  1. PALIPERIDONE [Suspect]
     Active Substance: PALIPERIDONE
     Indication: Bipolar disorder
     Route: 048
     Dates: start: 20241015
  2. UNSPECIFIED INGREDIENT [Concomitant]
     Active Substance: UNSPECIFIED INGREDIENT
     Indication: Product used for unknown indication
     Route: 065

REACTIONS (6)
  - Disturbance in attention [Unknown]
  - Restlessness [Unknown]
  - Feeling abnormal [Unknown]
  - Mood swings [Unknown]
  - Product label issue [Unknown]
  - Drug ineffective [Unknown]
